FAERS Safety Report 9263349 (Version 1)
Quarter: 2013Q2

REPORT INFORMATION
  Report Type: Spontaneous
  Country: IT (occurrence: None)
  Receive Date: 20130426
  Receipt Date: 20130426
  Transmission Date: 20140414
  Serious: Yes (Hospitalization)
  Sender: FDA-Public Use
  Company Number: AUR-APL-2013-03199

PATIENT
  Age: 70 Year
  Sex: Female

DRUGS (7)
  1. METFORMIN [Suspect]
     Indication: TYPE 2 DIABETES MELLITUS
     Route: 048
     Dates: start: 20100301, end: 20130412
  2. PRITOR (LACIDIPINE) [Concomitant]
  3. EUTIROX (LEVOTHYROXINE) [Concomitant]
  4. XANAX (ALPRAZOLAM) [Concomitant]
  5. RYTMONORM (PROPAFENONE HYDROCHLORIDE) [Concomitant]
  6. NEBIVOLOL HYDROCHLORIDE (NEBIVOLOL HYDROCHLORIDE) [Concomitant]
  7. INSULIN ASPART (INSULIN ASPART) [Concomitant]

REACTIONS (2)
  - Diarrhoea [None]
  - Metabolic acidosis [None]
